FAERS Safety Report 20379834 (Version 3)
Quarter: 2022Q2

REPORT INFORMATION
  Report Type: Spontaneous
  Country: US (occurrence: US)
  Receive Date: 20220126
  Receipt Date: 20220526
  Transmission Date: 20220720
  Serious: No
  Sender: FDA-Public Use
  Company Number: US-LUNDBECK-DKLU3043541

PATIENT
  Age: 67 Year
  Sex: Female

DRUGS (2)
  1. NORTHERA [Suspect]
     Active Substance: DROXIDOPA
     Indication: Autonomic neuropathy
     Route: 048
     Dates: start: 20211207
  2. NORTHERA [Suspect]
     Active Substance: DROXIDOPA
     Indication: Dizziness
     Route: 048
     Dates: start: 20220125

REACTIONS (1)
  - Urinary tract infection [Not Recovered/Not Resolved]
